FAERS Safety Report 8072842-5 (Version None)
Quarter: 2011Q4

REPORT INFORMATION
  Report Type: 
  Country: None (occurrence: None)
  Receive Date: 20111221
  Receipt Date: 20110902
  Transmission Date: 20120403
  Serious: Yes (Hospitalization)
  Sender: FDA-Public Use
  Company Number: PHEH2011US03229

PATIENT
  Age: 49 Year
  Sex: Male
  Weight: 110 kg

DRUGS (2)
  1. EXJADE [Suspect]
     Indication: HAEMOCHROMATOSIS
     Dosage: 1000 MG DAILY, ORAL
     Route: 048
     Dates: start: 20110810
  2. EXJADE [Suspect]
     Indication: TRANSFUSION
     Dosage: 1000 MG DAILY, ORAL
     Route: 048
     Dates: start: 20110810

REACTIONS (2)
  - RENAL FAILURE [None]
  - SICKLE CELL ANAEMIA WITH CRISIS [None]
